FAERS Safety Report 19800407 (Version 1)
Quarter: 2021Q3

REPORT INFORMATION
  Report Type: Spontaneous
  Country: CN (occurrence: CN)
  Receive Date: 20210908
  Receipt Date: 20210908
  Transmission Date: 20211014
  Serious: Yes (Other)
  Sender: FDA-Public Use
  Company Number: CN-BEH-2021135578

PATIENT
  Age: 84 Year
  Sex: Male

DRUGS (2)
  1. ALBURX [Suspect]
     Active Substance: ALBUMIN HUMAN
     Dosage: 10G/BOTTLE (20%, 50 ML)
     Route: 065
     Dates: start: 20210821
  2. ALBURX [Suspect]
     Active Substance: ALBUMIN HUMAN
     Dosage: 10G/BOTTLE (20%, 50 ML)
     Route: 065

REACTIONS (4)
  - Chills [Unknown]
  - Lung adenocarcinoma [Unknown]
  - Temperature intolerance [Unknown]
  - Cryophobia [Unknown]

NARRATIVE: CASE EVENT DATE: 20210821
